FAERS Safety Report 6785766-8 (Version None)
Quarter: 2010Q2

REPORT INFORMATION
  Report Type: 
  Country: None (occurrence: None)
  Receive Date: 20100622
  Receipt Date: 20100622
  Transmission Date: 20101027
  Serious: Yes (Hospitalization)
  Sender: FDA-Public Use
  Company Number: None

PATIENT
  Age: 94 Year
  Sex: Female
  Weight: 40.9 kg

DRUGS (7)
  1. COUMADIN [Suspect]
     Indication: ORTHOPEDIC PROCEDURE
     Dosage: 5 MG DAILY PO RECENT
     Route: 048
  2. TRANOLAPRIL [Concomitant]
  3. VERAPAMIL XR [Concomitant]
  4. QUESTRAN [Concomitant]
  5. TYLENOL [Concomitant]
  6. MOM [Concomitant]
  7. NYSTATIN [Concomitant]

REACTIONS (3)
  - HAEMATOMA [None]
  - HAEMOGLOBIN DECREASED [None]
  - INTERNATIONAL NORMALISED RATIO INCREASED [None]
